FAERS Safety Report 8234775-0 (Version None)
Quarter: 2012Q1

REPORT INFORMATION
  Report Type: 
  Country: None (occurrence: None)
  Receive Date: 20120322
  Receipt Date: 20120307
  Transmission Date: 20120608
  Serious: Yes (Life-Threatening)
  Sender: FDA-Public Use
  Company Number: 2012AT000109

PATIENT
  Age: 79 Year
  Sex: Male

DRUGS (5)
  1. PENTOXIFILINA BELM [Concomitant]
  2. ALPROSTADIL [Suspect]
     Indication: ARTERITIS
     Dosage: 3 AMPOULES;QD;IV
     Route: 042
     Dates: start: 20120203, end: 20120209
  3. RAMIPRIL [Concomitant]
  4. ATORVASTATIN [Concomitant]
  5. ACENOCOUMAROL [Concomitant]

REACTIONS (5)
  - CHILLS [None]
  - LOSS OF CONSCIOUSNESS [None]
  - BLOOD PRESSURE INCREASED [None]
  - INFUSION RELATED REACTION [None]
  - RESTLESSNESS [None]
